FAERS Safety Report 8678024 (Version 2)
Quarter: 2013Q2

REPORT INFORMATION
  Report Type: Spontaneous
  Country: US (occurrence: None)
  Receive Date: 20120406
  Receipt Date: 20120705
  Transmission Date: 20140414
  Serious: Yes (Life-Threatening, Hospitalization)
  Sender: FDA-Public Use
  Company Number: US-CYPR-2011-000076

PATIENT
  Age: 81 Year
  Sex: Male
  Weight: 79.38 kg

DRUGS (6)
  1. CLOPIDOGREL [Suspect]
     Indication: ANTIPLATELET THERAPY
     Dosage: 75 MG QD, ORAL?40 WEEKS 1
     Route: 048
     Dates: start: 20110127
  2. ASPIRIN [Suspect]
     Dosage: 81 MG, QD, ORAL
     Route: 048
     Dates: start: 20100125, end: 20111103
  3. ZOCOR [Concomitant]
  4. GLYBURIDE [Concomitant]
  5. METFORMIN HYDROCHLORIDE [Concomitant]
  6. CYPHER STENT [Concomitant]

REACTIONS (1)
  - CEREBRAL INFARCTION [None]
